FAERS Safety Report 16791374 (Version 2)
Quarter: 2019Q3

REPORT INFORMATION
  Report Type: Report from Study
  Country: SG (occurrence: SG)
  Receive Date: 20190910
  Receipt Date: 20190920
  Transmission Date: 20191005
  Serious: Yes (Other)
  Sender: FDA-Public Use
  Company Number: SG-ROCHE-2324382

PATIENT
  Sex: Male

DRUGS (2)
  1. LORLATINIB [Concomitant]
     Active Substance: LORLATINIB
  2. ALECENSA [Suspect]
     Active Substance: ALECTINIB HYDROCHLORIDE
     Indication: NON-SMALL CELL LUNG CANCER
     Route: 065

REACTIONS (3)
  - Drug ineffective [Unknown]
  - Renal impairment [Unknown]
  - Rhabdomyolysis [Recovered/Resolved]
